FAERS Safety Report 4698091-6 (Version None)
Quarter: 2005Q2

REPORT INFORMATION
  Report Type: 
  Country: None (occurrence: None)
  Receive Date: 20050623
  Receipt Date: 20050614
  Transmission Date: 20051028
  Serious: Yes (Other)
  Sender: FDA-Public Use
  Company Number: PHNU2005DE02277

PATIENT
  Age: 69 Year
  Sex: Male

DRUGS (1)
  1. GLEEVEC [Suspect]
     Dosage: 400 MG, QD
     Route: 048
     Dates: start: 20040601, end: 20050501

REACTIONS (3)
  - CARDIAC FAILURE [None]
  - METASTASES TO LYMPH NODES [None]
  - RENAL FAILURE [None]
